FAERS Safety Report 23325908 (Version 3)
Quarter: 2024Q1

REPORT INFORMATION
  Report Type: Spontaneous
  Country: US (occurrence: US)
  Receive Date: 20231221
  Receipt Date: 20240320
  Transmission Date: 20240409
  Serious: Yes (Other)
  Sender: FDA-Public Use
  Company Number: US-ROCHE-3464766

PATIENT
  Age: 61 Year
  Sex: Male

DRUGS (35)
  1. CAPECITABINE [Suspect]
     Active Substance: CAPECITABINE
     Indication: Rectal cancer metastatic
     Dates: start: 202110
  2. CAPECITABINE [Suspect]
     Active Substance: CAPECITABINE
     Indication: Colorectal cancer stage IV
     Dates: start: 202110
  3. CAPECITABINE [Suspect]
     Active Substance: CAPECITABINE
     Indication: Rectal cancer metastatic
  4. CAPECITABINE [Suspect]
     Active Substance: CAPECITABINE
     Indication: Colorectal cancer stage IV
  5. AVASTIN [Suspect]
     Active Substance: BEVACIZUMAB
     Indication: Colorectal cancer stage IV
     Route: 048
     Dates: start: 20230705
  6. AVASTIN [Suspect]
     Active Substance: BEVACIZUMAB
     Indication: Rectal cancer metastatic
     Route: 048
     Dates: start: 20230705
  7. AVASTIN [Suspect]
     Active Substance: BEVACIZUMAB
     Indication: Colorectal cancer stage IV
  8. AVASTIN [Suspect]
     Active Substance: BEVACIZUMAB
     Indication: Rectal cancer metastatic
  9. LONSURF [Suspect]
     Active Substance: TIPIRACIL HYDROCHLORIDE\TRIFLURIDINE
     Indication: Colorectal cancer stage IV
     Dosage: 30 TWICE DAILY ORALLY ON DAYS 1-5 AND 8-12 OF EACH 28-DAY CYCLE ?DAILY DOSE: 60 MILLIGRAM
     Route: 048
     Dates: start: 20230705
  10. LONSURF [Suspect]
     Active Substance: TIPIRACIL HYDROCHLORIDE\TRIFLURIDINE
     Indication: Rectal cancer metastatic
     Dosage: 30 TWICE DAILY ORALLY ON DAYS 1-5 AND 8-12 OF EACH 28-DAY CYCLE ?DAILY DOSE: 60 MILLIGRAM
     Route: 048
     Dates: start: 20230705
  11. ALPRAZOLAM [Concomitant]
     Active Substance: ALPRAZOLAM
  12. CEFPODOXIME [Concomitant]
     Active Substance: CEFPODOXIME
  13. Doxycyline hydrochloride [Concomitant]
  14. LORATADINE [Concomitant]
     Active Substance: LORATADINE
     Route: 048
  15. ONDANSETRON [Concomitant]
     Active Substance: ONDANSETRON
  16. LYRICA [Concomitant]
     Active Substance: PREGABALIN
  17. AMITRIPTYLINE [Concomitant]
     Active Substance: AMITRIPTYLINE
     Route: 048
  18. AMLODIPINE [Concomitant]
     Active Substance: AMLODIPINE BESYLATE
     Route: 048
  19. HYDROCODONE BITARTRATE AND ACETAMINOPHEN [Concomitant]
     Active Substance: ACETAMINOPHEN\HYDROCODONE BITARTRATE
     Dosage: 10-325 MG
     Route: 048
  20. TAMSULOSIN [Concomitant]
     Active Substance: TAMSULOSIN
     Route: 048
  21. PANTOPRAZOLE SODIUM [Concomitant]
     Active Substance: PANTOPRAZOLE SODIUM
     Dosage: DELAYED RELEASE
     Route: 048
  22. PRAVASTATIN SODIUM [Concomitant]
     Active Substance: PRAVASTATIN SODIUM
     Route: 048
  23. ALENDRONATE [Concomitant]
     Active Substance: ALENDRONATE SODIUM
     Route: 048
  24. MIRALAX [Concomitant]
     Active Substance: POLYETHYLENE GLYCOL 3350
     Route: 048
  25. SENOKOT-S [Concomitant]
     Active Substance: DOCUSATE SODIUM\SENNOSIDES
     Dosage: 8.6 MG-50 MG
     Route: 048
  26. NARCAN [Concomitant]
     Active Substance: NALOXONE HYDROCHLORIDE
     Dosage: SPRAY, 4MG/ACTUATION
     Route: 045
  27. VITAMIN D [Concomitant]
     Active Substance: VITAMIN D NOS
  28. ZOLOFT [Concomitant]
     Active Substance: SERTRALINE HYDROCHLORIDE
     Route: 048
  29. COMPAZINE [Concomitant]
     Active Substance: PROCHLORPERAZINE MALEATE
     Route: 048
  30. MEDROL [Concomitant]
     Active Substance: METHYLPREDNISOLONE
     Route: 048
  31. REGLAN [Concomitant]
     Active Substance: METOCLOPRAMIDE HYDROCHLORIDE
     Route: 048
  32. Regorfenib [Concomitant]
  33. LIDOCAINE [Concomitant]
     Active Substance: LIDOCAINE
     Dosage: PATCH
     Route: 061
  34. SUCRALFATE [Concomitant]
     Active Substance: SUCRALFATE
     Route: 048
  35. AZITHROMYCIN [Concomitant]
     Active Substance: AZITHROMYCIN
     Route: 048

REACTIONS (7)
  - Agranulocytosis [Unknown]
  - Metastases to lung [Unknown]
  - Pulmonary mass [Unknown]
  - Nausea [Unknown]
  - Syncope [Unknown]
  - Fatigue [Unknown]
  - Nausea [Not Recovered/Not Resolved]

NARRATIVE: CASE EVENT DATE: 20231117
